FAERS Safety Report 6609164-2 (Version None)
Quarter: 2010Q1

REPORT INFORMATION
  Report Type: 
  Country: None (occurrence: None)
  Receive Date: 20100224
  Receipt Date: 20090817
  Transmission Date: 20100710
  Serious: Yes (Disabling)
  Sender: FDA-Public Use
  Company Number: APP200900574

PATIENT
  Age: 48 Year
  Sex: Male

DRUGS (2)
  1. SENSORCAINE [Suspect]
     Indication: MUSCULOSKELETAL PAIN
     Dosage: CONTINOUS VIA PUMP
     Dates: start: 20060817
  2. PAIN PUMP [Suspect]
     Indication: MUSCULOSKELETAL PAIN
     Dates: start: 20060817

REACTIONS (4)
  - JOINT INJURY [None]
  - JOINT RANGE OF MOTION DECREASED [None]
  - MUSCULOSKELETAL DISCOMFORT [None]
  - MUSCULOSKELETAL PAIN [None]
